FAERS Safety Report 9530242 (Version 1)
Quarter: 2013Q3

REPORT INFORMATION
  Report Type: Spontaneous
  Country: IN (occurrence: IN)
  Receive Date: 20130917
  Receipt Date: 20130917
  Transmission Date: 20140515
  Serious: Yes (Death)
  Sender: FDA-Public Use
  Company Number: IN-WATSON-2013-16593

PATIENT
  Age: 25 Year
  Sex: Male

DRUGS (5)
  1. ISOFLURANE (UNKNOWN) [Suspect]
     Indication: MAINTENANCE OF ANAESTHESIA
     Dosage: UNK
     Route: 055
  2. FENTANYL [Concomitant]
     Indication: INDUCTION OF ANAESTHESIA
     Dosage: 100 ?G, SINGLE
     Route: 042
  3. THIOPENTONE                        /00053401/ [Concomitant]
     Indication: INDUCTION OF ANAESTHESIA
     Dosage: 250 MG, SINGLE
     Route: 042
  4. VECURONIUM [Concomitant]
     Indication: ENDOTRACHEAL INTUBATION
     Dosage: 6 MG, SINGLE
     Route: 065
  5. NITROUS OXIDE [Concomitant]
     Indication: MAINTENANCE OF ANAESTHESIA
     Dosage: UNK
     Route: 055

REACTIONS (2)
  - Autonomic dysreflexia [Fatal]
  - Cardiac arrest [Fatal]
